FAERS Safety Report 9040575 (Version 1)
Quarter: 2013Q1

REPORT INFORMATION
  Report Type: Report from Study
  Country: US (occurrence: US)
  Receive Date: 20130129
  Receipt Date: 20130129
  Transmission Date: 20140127
  Serious: No
  Sender: FDA-Public Use
  Company Number: US-ABBOTT-12P-163-0888783-00

PATIENT
  Age: 50 Year
  Sex: Female

DRUGS (5)
  1. HUMIRA 40 MG/0.8 ML PEN [Suspect]
     Indication: CROHN^S DISEASE
     Dosage: TODAY
     Dates: start: 20120102
  2. LORTAB [Concomitant]
     Indication: PRODUCT USED FOR UNKNOWN INDICATION
     Dosage: 1-2 DAILY 5/500 MG
  3. COZAAR [Concomitant]
     Indication: PRODUCT USED FOR UNKNOWN INDICATION
  4. ENTOCORT [Concomitant]
     Indication: PRODUCT USED FOR UNKNOWN INDICATION
  5. PHENERGAN [Concomitant]
     Indication: NAUSEA

REACTIONS (5)
  - Injection site erythema [Not Recovered/Not Resolved]
  - Injection site pruritus [Not Recovered/Not Resolved]
  - Injection site pain [Not Recovered/Not Resolved]
  - Dizziness [Recovered/Resolved]
  - Injection site papule [Not Recovered/Not Resolved]
